FAERS Safety Report 18351049 (Version 1)
Quarter: 2020Q4

REPORT INFORMATION
  Report Type: Spontaneous
  Country: US (occurrence: US)
  Receive Date: 20201006
  Receipt Date: 20201006
  Transmission Date: 20210114
  Serious: No
  Sender: FDA-Public Use
  Company Number: US-PFIZER INC-2020380874

PATIENT
  Age: 40 Year
  Sex: Male

DRUGS (2)
  1. GEODON [Suspect]
     Active Substance: ZIPRASIDONE HYDROCHLORIDE\ZIPRASIDONE MESYLATE
     Dosage: 40 MG, 2X/DAY (EVERY 12 HOURS)
     Dates: start: 20200522
  2. GEODON [Suspect]
     Active Substance: ZIPRASIDONE HYDROCHLORIDE\ZIPRASIDONE MESYLATE
     Dosage: 40 MG, 2X/DAY (EVERY 12 HOURS)
     Dates: start: 2018, end: 20191031

REACTIONS (3)
  - Bradykinesia [Unknown]
  - Intentional dose omission [Unknown]
  - Weight abnormal [Unknown]
